FAERS Safety Report 25078772 (Version 2)
Quarter: 2025Q3

REPORT INFORMATION
  Report Type: Spontaneous
  Country: EU (occurrence: EU)
  Receive Date: 20250314
  Receipt Date: 20250803
  Transmission Date: 20251021
  Serious: Yes (Hospitalization)
  Sender: ALEXION PHARMACEUTICALS
  Company Number: EU-SANOFI-02435632

PATIENT
  Sex: Male

DRUGS (1)
  1. NIRSEVIMAB [Suspect]
     Active Substance: NIRSEVIMAB
     Indication: Immunisation
     Route: 065
     Dates: start: 20241128, end: 20241128

REACTIONS (2)
  - Respiratory syncytial virus infection [Unknown]
  - Drug ineffective [Unknown]
